FAERS Safety Report 22597742 (Version 4)
Quarter: 2023Q4

REPORT INFORMATION
  Report Type: Spontaneous
  Country: US (occurrence: US)
  Receive Date: 20230614
  Receipt Date: 20231110
  Transmission Date: 20240110
  Serious: Yes (Other)
  Sender: FDA-Public Use
  Company Number: US-BRISTOL-MYERS SQUIBB COMPANY-2023-083124

PATIENT
  Age: 69 Year
  Sex: Male

DRUGS (1)
  1. REVLIMID [Suspect]
     Active Substance: LENALIDOMIDE
     Indication: Plasma cell myeloma
     Dosage: TAKE 1 CAPSULE BY MOUTH EVERY DAY ON DAYS 1-21 THEN OFF FOR 7 DAYS OF
     Route: 048
     Dates: start: 20210513

REACTIONS (4)
  - Treatment noncompliance [Unknown]
  - Tooth fracture [Recovering/Resolving]
  - Pyrexia [Recovering/Resolving]
  - Osteonecrosis of jaw [Not Recovered/Not Resolved]
